FAERS Safety Report 23967269 (Version 1)
Quarter: 2024Q2

REPORT INFORMATION
  Report Type: Spontaneous
  Country: PT (occurrence: PT)
  Receive Date: 20240612
  Receipt Date: 20240612
  Transmission Date: 20240716
  Serious: Yes (Life-Threatening, Hospitalization, Other)
  Sender: FDA-Public Use
  Company Number: PT-GRANULES-PT-2024GRALIT00211

PATIENT
  Age: 54 Year
  Sex: Female

DRUGS (6)
  1. METFORMIN HYDROCHLORIDE [Suspect]
     Active Substance: METFORMIN HYDROCHLORIDE
     Indication: Product used for unknown indication
     Route: 065
  2. ALPRAZOLAM [Suspect]
     Active Substance: ALPRAZOLAM
     Indication: Product used for unknown indication
     Route: 065
  3. VENLAFAXINE [Suspect]
     Active Substance: VENLAFAXINE HYDROCHLORIDE
     Indication: Product used for unknown indication
     Route: 065
  4. PROPRANOLOL [Suspect]
     Active Substance: PROPRANOLOL HYDROCHLORIDE
     Indication: Product used for unknown indication
     Route: 065
  5. LETROZOLE [Suspect]
     Active Substance: LETROZOLE
     Indication: Product used for unknown indication
     Route: 065
  6. VILDAGLIPTIN [Suspect]
     Active Substance: VILDAGLIPTIN
     Indication: Product used for unknown indication
     Route: 065

REACTIONS (8)
  - Coma [Unknown]
  - Electrocardiogram QT prolonged [Unknown]
  - Bradycardia [Unknown]
  - Toxicity to various agents [Unknown]
  - Lactic acidosis [Recovering/Resolving]
  - Hypotension [Unknown]
  - Hypoglycaemia [Unknown]
  - Intentional overdose [Unknown]
